FAERS Safety Report 15226281 (Version 2)
Quarter: 2018Q3

REPORT INFORMATION
  Report Type: Spontaneous
  Country: US (occurrence: US)
  Receive Date: 20180801
  Receipt Date: 20180902
  Transmission Date: 20181010
  Serious: No
  Sender: FDA-Public Use
  Company Number: PHEH2018US030462

PATIENT
  Sex: Male

DRUGS (1)
  1. MEKINIST [Suspect]
     Active Substance: TRAMETINIB DIMETHYL SULFOXIDE
     Indication: NERVOUS SYSTEM NEOPLASM BENIGN
     Dosage: 0.5 MG, QD
     Route: 048
     Dates: start: 20170510

REACTIONS (3)
  - Epistaxis [Unknown]
  - Rash [Unknown]
  - Product use in unapproved indication [Unknown]
